FAERS Safety Report 5566862-X (Version None)
Quarter: 2007Q4

REPORT INFORMATION
  Report Type: 
  Country: None (occurrence: None)
  Receive Date: 20071219
  Receipt Date: 20070223
  Transmission Date: 20080405
  Serious: No
  Sender: FDA-Public Use
  Company Number: US-ABBOTT-07P-163-0361769-00

PATIENT

DRUGS (1)
  1. NIMBEX 2MG/ML INJECTION, 10ML M-D VIAL [Suspect]
     Indication: SURGERY

REACTIONS (1)
  - DRUG INEFFECTIVE [None]
